FAERS Safety Report 7024644-6 (Version None)
Quarter: 2010Q4

REPORT INFORMATION
  Report Type: 
  Country: None (occurrence: None)
  Receive Date: 20101001
  Receipt Date: 20100922
  Transmission Date: 20110411
  Serious: Yes (Hospitalization)
  Sender: FDA-Public Use
  Company Number: JP-JNJFOC-20100801058

PATIENT
  Sex: Female

DRUGS (18)
  1. TOPIRAMATE [Suspect]
     Indication: EPILEPSY
     Route: 048
  2. TOPIRAMATE [Suspect]
     Route: 048
  3. TOPIRAMATE [Suspect]
     Route: 048
  4. TOPIRAMATE [Suspect]
     Route: 048
  5. TOPIRAMATE [Suspect]
     Route: 048
  6. TOPIRAMATE [Suspect]
     Route: 048
  7. HYDANTOL [Interacting]
     Indication: EPILEPSY
     Route: 048
  8. HYDANTOL [Interacting]
     Route: 048
  9. HYDANTOL [Interacting]
     Route: 048
  10. HYDANTOL [Interacting]
     Route: 048
  11. HYDANTOL [Interacting]
     Route: 048
  12. HYDANTOL [Interacting]
     Route: 048
  13. HYDANTOL [Interacting]
     Route: 048
  14. HYDANTOL [Interacting]
     Route: 048
  15. HYDANTOL [Interacting]
     Route: 048
  16. HYDANTOL [Interacting]
     Route: 048
  17. HYDANTOL [Interacting]
     Route: 048
  18. HYDANTOL [Interacting]
     Route: 048

REACTIONS (3)
  - ANTICONVULSANT DRUG LEVEL DECREASED [None]
  - DRUG INTERACTION [None]
  - STATUS EPILEPTICUS [None]
